FAERS Safety Report 7822906-3 (Version None)
Quarter: 2011Q4

REPORT INFORMATION
  Report Type: 
  Country: None (occurrence: None)
  Receive Date: 20111018
  Receipt Date: 20110819
  Transmission Date: 20120403
  Serious: No
  Sender: FDA-Public Use
  Company Number: US-ASTRAZENECA-2011SE49895

PATIENT
  Age: 19474 Day
  Sex: Male
  Weight: 77.1 kg

DRUGS (1)
  1. SYMBICORT [Suspect]
     Indication: ASTHMA
     Dosage: 160/4.5 MCG , 1 PUFF TWO TIMES A DAY
     Route: 055

REACTIONS (2)
  - OFF LABEL USE [None]
  - INCORRECT PRODUCT STORAGE [None]
